FAERS Safety Report 8555795 (Version 2)
Quarter: 2012Q4

REPORT INFORMATION
  Report Type: Report from Study
  Country: US (occurrence: US)
  Receive Date: 20120510
  Receipt Date: 20121109
  Transmission Date: 20130627
  Serious: Yes (Hospitalization)
  Sender: FDA-Public Use
  Company Number: US-ROCHE-1065537

PATIENT
  Age: 62 Year
  Sex: Female
  Weight: 61.4 kg

DRUGS (6)
  1. BEVACIZUMAB [Suspect]
     Indication: GLIOSARCOMA
     Dosage: last dose prior to SAE:17/Apr/2012
     Route: 042
     Dates: start: 20120207
  2. TEMOZOLOMIDE [Suspect]
     Indication: GLIOSARCOMA
     Dosage: lst dose prior to SAE:21/Apr/2012
     Route: 048
     Dates: start: 20120207
  3. TEMOZOLOMIDE [Suspect]
     Dosage: concomitant Temozolomide
     Route: 065
     Dates: start: 20110328
  4. TEMOZOLOMIDE [Suspect]
     Dosage: adjuvant Temozolomide
     Route: 065
     Dates: start: 201106
  5. DECADRON [Concomitant]
     Route: 065
  6. ONDANSETRON [Concomitant]
     Route: 065

REACTIONS (1)
  - Status epilepticus [Unknown]
